FAERS Safety Report 14540309 (Version 3)
Quarter: 2020Q4

REPORT INFORMATION
  Report Type: Report from Study
  Country: GT (occurrence: GT)
  Receive Date: 20180216
  Receipt Date: 20201203
  Transmission Date: 20210113
  Serious: Yes (Other)
  Sender: FDA-Public Use
  Company Number: PHHY2018GT025603

PATIENT
  Sex: Female

DRUGS (6)
  1. FOLIC ACID. [Concomitant]
     Active Substance: FOLIC ACID
     Indication: PRODUCT USED FOR UNKNOWN INDICATION
     Route: 065
  2. PREGABALIN. [Concomitant]
     Active Substance: PREGABALIN
     Indication: PAIN
     Dosage: UNK UNK, PRN
     Route: 065
  3. CHOLECALCIFEROL [Concomitant]
     Active Substance: CHOLECALCIFEROL
     Indication: PRODUCT USED FOR UNKNOWN INDICATION
     Route: 065
  4. GILENYA [Suspect]
     Active Substance: FINGOLIMOD HYDROCHLORIDE
     Indication: MULTIPLE SCLEROSIS
     Dosage: 0.5 MG, QD
     Route: 048
     Dates: start: 20180213
  5. NATELE [Concomitant]
     Active Substance: VITAMINS
     Indication: PRODUCT USED FOR UNKNOWN INDICATION
     Dosage: 1 DF, QD
     Route: 065
  6. VITAMIN B9 [Concomitant]
     Indication: PRODUCT USED FOR UNKNOWN INDICATION
     Dosage: 5 MG, QD
     Route: 065

REACTIONS (16)
  - Hormone level abnormal [Unknown]
  - Cholelithiasis [Unknown]
  - Drug interaction [Unknown]
  - Abdominal pain [Recovering/Resolving]
  - Stress [Unknown]
  - Vaginal infection [Unknown]
  - Discomfort [Unknown]
  - Fear [Unknown]
  - Vomiting [Unknown]
  - Heart rate decreased [Unknown]
  - Liver disorder [Unknown]
  - Calculus urinary [Unknown]
  - Erythema [Recovering/Resolving]
  - Malaise [Unknown]
  - Nephrolithiasis [Not Recovered/Not Resolved]
  - Dyspnoea [Recovering/Resolving]
